FAERS Safety Report 13719485 (Version 1)
Quarter: 2017Q3

REPORT INFORMATION
  Report Type: Spontaneous
  Country: US (occurrence: US)
  Receive Date: 20170705
  Receipt Date: 20170705
  Transmission Date: 20171127
  Serious: No
  Sender: FDA-Public Use
  Company Number: US-ROCHE-1923212

PATIENT
  Age: 51 Year
  Sex: Male
  Weight: 95.34 kg

DRUGS (1)
  1. TECENTRIQ [Suspect]
     Active Substance: ATEZOLIZUMAB
     Indication: URINARY CYSTECTOMY
     Dosage: YES
     Route: 065
     Dates: start: 20161103

REACTIONS (6)
  - Musculoskeletal stiffness [Recovered/Resolved]
  - Feeling cold [Recovered/Resolved]
  - Fatigue [Not Recovered/Not Resolved]
  - Hypothyroidism [Recovered/Resolved]
  - Lymphadenopathy [Recovered/Resolved]
  - Fatigue [Recovered/Resolved]

NARRATIVE: CASE EVENT DATE: 201612
